FAERS Safety Report 21769069 (Version 2)
Quarter: 2022Q4

REPORT INFORMATION
  Report Type: Spontaneous
  Country: BR (occurrence: BR)
  Receive Date: 20221222
  Receipt Date: 20221228
  Transmission Date: 20230113
  Serious: No
  Sender: FDA-Public Use
  Company Number: BR-ABBVIE-4247665

PATIENT
  Sex: Female
  Weight: 98 kg

DRUGS (7)
  1. RINVOQ [Suspect]
     Active Substance: UPADACITINIB
     Indication: Rheumatoid arthritis
     Dosage: 1 TABLET
     Route: 048
     Dates: start: 202205
  2. RINVOQ [Suspect]
     Active Substance: UPADACITINIB
     Indication: Rheumatoid arthritis
     Dosage: 1 TABLET
     Route: 048
  3. Velija (duloxetine hydrochloride) [Concomitant]
     Indication: Pain
     Dosage: 1 TABLET?FORM STRENGTH: 30MG
     Route: 048
     Dates: start: 2004
  4. HYDROXYCHLOROQUINE [Concomitant]
     Active Substance: HYDROXYCHLOROQUINE
     Indication: Rheumatoid arthritis
     Dosage: 1 TABLET?FORM STRENGTH: 30 MG
     Route: 048
     Dates: start: 2004
  5. DIPYRONE [Concomitant]
     Active Substance: DIPYRONE
     Indication: Product used for unknown indication
     Dosage: 2 TABLET
  6. PREDNISOLONE [Concomitant]
     Active Substance: PREDNISOLONE
     Indication: Pain
     Dosage: 20 MILLIGRAM? START DATE TEXT: 20 YEARS AGO
     Route: 048
     Dates: end: 20221123
  7. TORSILAX [Concomitant]
     Active Substance: ACETAMINOPHEN\CAFFEINE\CARISOPRODOL\DICLOFENAC
     Indication: Pain
     Dosage: START DATE TEXT: ONE YEAR AGO
     Route: 048
     Dates: end: 20221123

REACTIONS (4)
  - Pain in extremity [Recovering/Resolving]
  - Drug ineffective [Unknown]
  - Gait disturbance [Recovering/Resolving]
  - Back pain [Not Recovered/Not Resolved]
